FAERS Safety Report 18474111 (Version 1)
Quarter: 2020Q4

REPORT INFORMATION
  Report Type: Spontaneous
  Country: US (occurrence: US)
  Receive Date: 20201104
  Receipt Date: 20201104
  Transmission Date: 20210114
  Serious: Yes (Hospitalization)
  Sender: FDA-Public Use
  Company Number: None

PATIENT
  Age: 64 Year
  Sex: Female
  Weight: 49.44 kg

DRUGS (12)
  1. SELENIUM. [Concomitant]
     Active Substance: SELENIUM
  2. VIT D [Concomitant]
     Active Substance: VITAMIN D NOS
  3. SINGULAIR [Concomitant]
     Active Substance: MONTELUKAST SODIUM
  4. MG [Concomitant]
     Active Substance: MAGNESIUM
  5. MULTIVITAMINS [Concomitant]
     Active Substance: VITAMINS
  6. CA [Concomitant]
  7. L-TYROSINE [Concomitant]
     Active Substance: TYROSINE
  8. CHOLESTYRAMINE. [Suspect]
     Active Substance: CHOLESTYRAMINE
     Dates: end: 201905
  9. ADVAIR HFA [Concomitant]
     Active Substance: FLUTICASONE PROPIONATE\SALMETEROL XINAFOATE
  10. ALBUTEROL. [Concomitant]
     Active Substance: ALBUTEROL
  11. DEXILANT [Concomitant]
     Active Substance: DEXLANSOPRAZOLE
  12. ZINC. [Concomitant]
     Active Substance: ZINC

REACTIONS (5)
  - Feeding disorder [None]
  - Gastric disorder [None]
  - Weight decreased [None]
  - Product complaint [None]
  - Pain [None]

NARRATIVE: CASE EVENT DATE: 20190520
